FAERS Safety Report 8895512 (Version 2)
Quarter: 2012Q4

REPORT INFORMATION
  Report Type: 
  Country: US (occurrence: US)
  Receive Date: 20121108
  Receipt Date: 20121109
  Transmission Date: 20130627
  Serious: Yes (Hospitalization)
  Sender: FDA-Public Use
  Company Number: US-BAYER-2012-116158

PATIENT
  Age: 50 Year
  Sex: Female
  Weight: 74 kg

DRUGS (3)
  1. ACETYLSALICYLIC ACID (} 100 MG) [Suspect]
     Indication: PREVENTION
  2. PRASUGREL [Suspect]
     Indication: PREVENTION
     Dosage: 60 mg, ONCE
  3. PRASUGREL [Suspect]
     Indication: PREVENTION
     Dosage: Daily dose 5 mg

REACTIONS (3)
  - Subarachnoid haemorrhage [Recovering/Resolving]
  - Carotid artery thrombosis [Recovering/Resolving]
  - Carotid artery aneurysm [Recovering/Resolving]
